FAERS Safety Report 9174046 (Version 1)
Quarter: 2013Q1

REPORT INFORMATION
  Report Type: Spontaneous
  Country: US (occurrence: US)
  Receive Date: 20130320
  Receipt Date: 20130320
  Transmission Date: 20140127
  Serious: Yes (Other)
  Sender: FDA-Public Use
  Company Number: US-JNJFOC-20090804171

PATIENT
  Age: 48 Year
  Sex: Female

DRUGS (3)
  1. MOTRIN IB [Suspect]
     Indication: OEDEMA PERIPHERAL
     Dosage: 200 MG, OD, 10/1/00-10/2/00; 2 DOSES
     Route: 048
  2. KLONOPIN [Concomitant]
     Route: 065
  3. DEPAKOTE [Concomitant]
     Route: 065

REACTIONS (3)
  - Convulsion [Unknown]
  - Nausea [Unknown]
  - Dizziness [Unknown]
